FAERS Safety Report 8054233-6 (Version None)
Quarter: 2012Q1

REPORT INFORMATION
  Report Type: 
  Country: None (occurrence: None)
  Receive Date: 20120118
  Receipt Date: 20120117
  Transmission Date: 20120608
  Serious: No
  Sender: FDA-Public Use
  Company Number: US-BAYER-2012-005572

PATIENT
  Age: 42 Year
  Sex: Female

DRUGS (2)
  1. AVELOX [Suspect]
     Indication: PNEUMONIA
     Dosage: 400 MG, QD
     Route: 048
     Dates: start: 20120105, end: 20120111
  2. PREDNISONE [Concomitant]
     Indication: PNEUMONIA

REACTIONS (8)
  - HYPERSOMNIA [None]
  - ARTHRALGIA [None]
  - MUSCLE FATIGUE [None]
  - MOBILITY DECREASED [None]
  - MUSCULAR WEAKNESS [None]
  - VISUAL ACUITY REDUCED [None]
  - HYPERHIDROSIS [None]
  - DIZZINESS [None]
